FAERS Safety Report 8277018-4 (Version None)
Quarter: 2012Q2

REPORT INFORMATION
  Report Type: 
  Country: None (occurrence: None)
  Receive Date: 20120412
  Receipt Date: 20120404
  Transmission Date: 20120825
  Serious: Yes (Other)
  Sender: FDA-Public Use
  Company Number: US-ROCHE-725854

PATIENT
  Sex: Female

DRUGS (2)
  1. AVASTIN [Suspect]
     Indication: PRODUCT USED FOR UNKNOWN INDICATION
     Route: 050
     Dates: start: 20091101, end: 20100201
  2. AVASTIN [Suspect]
     Dosage: 5 TH INJECTION
     Route: 050

REACTIONS (5)
  - INJURY [None]
  - EYE INFECTION [None]
  - VISUAL ACUITY REDUCED [None]
  - PRODUCT QUALITY ISSUE [None]
  - ANXIETY [None]
